FAERS Safety Report 6187005-8 (Version None)
Quarter: 2009Q2

REPORT INFORMATION
  Report Type: 
  Country: None (occurrence: None)
  Receive Date: 20090508
  Receipt Date: 20090508
  Transmission Date: 20091009
  Serious: Yes (Life-Threatening, Other)
  Sender: FDA-Public Use
  Company Number: None

PATIENT
  Age: 8 Year
  Sex: Male
  Weight: 23.587 kg

DRUGS (1)
  1. ETHOSUXIMIDE [Suspect]
     Indication: EPILEPSY
     Dosage: 250MG/5ML 1-AM/2-PM DAILY PO
     Route: 048
     Dates: start: 20090409, end: 20090507

REACTIONS (3)
  - CONVULSION [None]
  - DRUG LEVEL CHANGED [None]
  - PRODUCT SUBSTITUTION ISSUE [None]
